FAERS Safety Report 9753257 (Version 2)
Quarter: 2013Q4

REPORT INFORMATION
  Report Type: Spontaneous
  Country: US (occurrence: US)
  Receive Date: 20131213
  Receipt Date: 20131213
  Transmission Date: 20140711
  Serious: No
  Sender: FDA-Public Use
  Company Number: US-GILEAD-2010-0026983

PATIENT
  Sex: Male
  Weight: 70.31 kg

DRUGS (6)
  1. LETAIRIS [Suspect]
     Indication: PULMONARY ARTERIAL HYPERTENSION
     Route: 048
     Dates: start: 20091119
  2. LORAZEPAM [Concomitant]
  3. ATENOLOL [Concomitant]
  4. IMODIUM [Concomitant]
  5. FLOMAX [Concomitant]
  6. WARFARIN [Concomitant]

REACTIONS (3)
  - Insomnia [Unknown]
  - Hunger [Unknown]
  - Nasal congestion [Unknown]
